FAERS Safety Report 6829587-6 (Version None)
Quarter: 2010Q3

REPORT INFORMATION
  Report Type: 
  Country: None (occurrence: None)
  Receive Date: 20100709
  Receipt Date: 20070418
  Transmission Date: 20110219
  Serious: No
  Sender: FDA-Public Use
  Company Number: US-PFIZER INC-2007013041

PATIENT
  Sex: Female
  Weight: 63.96 kg

DRUGS (6)
  1. CHANTIX [Suspect]
     Indication: SMOKING CESSATION THERAPY
     Route: 048
     Dates: start: 20070101, end: 20070218
  2. ATENOLOL [Concomitant]
     Indication: ANXIETY DISORDER
     Route: 048
  3. AMBIEN [Concomitant]
  4. CALCIUM CARBONATE [Concomitant]
  5. RED YEAST RICE [Concomitant]
  6. FISH OIL [Concomitant]

REACTIONS (4)
  - AGITATION [None]
  - HYPERSOMNIA [None]
  - TERMINAL INSOMNIA [None]
  - VERTIGO [None]
